FAERS Safety Report 9768821 (Version 3)
Quarter: 2014Q2

REPORT INFORMATION
  Report Type: Report from Study
  Country: US (occurrence: US)
  Receive Date: 20131218
  Receipt Date: 20140602
  Transmission Date: 20141212
  Serious: No
  Sender: FDA-Public Use
  Company Number: US-ROCHE-1318751

PATIENT
  Age: 10 Year
  Sex: Female
  Weight: 19 kg

DRUGS (3)
  1. NUTROPIN [Suspect]
     Indication: BODY HEIGHT BELOW NORMAL
     Route: 058
  2. NUTROPIN [Suspect]
     Route: 058
  3. CORTEF [Concomitant]
     Route: 065

REACTIONS (4)
  - Weight decreased [Unknown]
  - Body height decreased [Unknown]
  - Body mass index decreased [Unknown]
  - Pneumonia [Unknown]
